FAERS Safety Report 4283788-2 (Version None)
Quarter: 2004Q1

REPORT INFORMATION
  Report Type: 
  Country: None (occurrence: None)
  Receive Date: 20040115
  Receipt Date: 20030221
  Transmission Date: 20041129
  Serious: Yes (Hospitalization, Other)
  Sender: FDA-Public Use
  Company Number: NSADSS2002041228

PATIENT
  Age: 60 Year
  Sex: Female
  Weight: 72.5755 kg

DRUGS (3)
  1. DOXIL [Suspect]
     Indication: ENDOMETRIAL CANCER
     Dosage: 71 MG, INTRAVENOUS DRIP
     Route: 041
     Dates: start: 20020923, end: 20021021
  2. CARBOPLATIN [Concomitant]
  3. GLUCOTROL [Concomitant]

REACTIONS (6)
  - DEHYDRATION [None]
  - DYSPHAGIA [None]
  - NAUSEA [None]
  - OESOPHAGEAL ULCER [None]
  - OESOPHAGITIS [None]
  - VOMITING [None]
